FAERS Safety Report 13360619 (Version 1)
Quarter: 2017Q1

REPORT INFORMATION
  Report Type: Spontaneous
  Country: US (occurrence: US)
  Receive Date: 20170322
  Receipt Date: 20170322
  Transmission Date: 20170429
  Serious: Yes (Other)
  Sender: FDA-Public Use
  Company Number: US-CELGENEUS-USA-2017034629

PATIENT
  Sex: Female

DRUGS (1)
  1. OTEZLA [Suspect]
     Active Substance: APREMILAST
     Indication: PRODUCT USED FOR UNKNOWN INDICATION
     Dosage: 10-20-30 MG
     Route: 048

REACTIONS (4)
  - Hypoacusis [Unknown]
  - Pain of skin [Unknown]
  - Skin fissures [Unknown]
  - Musculoskeletal disorder [Unknown]
